FAERS Safety Report 24986794 (Version 4)
Quarter: 2025Q4

REPORT INFORMATION
  Report Type: Spontaneous
  Country: US (occurrence: None)
  Receive Date: 20250219
  Receipt Date: 20251029
  Transmission Date: 20260118
  Serious: Yes (Other)
  Sender: UCB
  Company Number: US-UCBSA-2025002341

PATIENT
  Age: 46 Year

DRUGS (2)
  1. BIMZELX [Suspect]
     Active Substance: BIMEKIZUMAB-BKZX
     Indication: Psoriatic arthropathy
     Dosage: 160 MILLIGRAM, EV 4 WEEKS
  2. MIRENA [Concomitant]
     Active Substance: LEVONORGESTREL
     Indication: Intrauterine contraception
     Dosage: UNK

REACTIONS (6)
  - Psoriatic arthropathy [Unknown]
  - Pain [Unknown]
  - Erythema [Unknown]
  - Pruritus [Unknown]
  - Burning sensation [Unknown]
  - Therapeutic response shortened [Unknown]
